FAERS Safety Report 6682728-6 (Version None)
Quarter: 2010Q2

REPORT INFORMATION
  Report Type: 
  Country: None (occurrence: None)
  Receive Date: 20100415
  Receipt Date: 20100405
  Transmission Date: 20101027
  Serious: Yes (Death)
  Sender: FDA-Public Use
  Company Number: US-ROCHE-696078

PATIENT
  Sex: Male
  Weight: 68 kg

DRUGS (1)
  1. CAPECITABINE [Suspect]
     Dosage: 2 TABS IN MORNING AND EVENING, 2 WEEKS ON AND ONE WEEK OFF
     Route: 048
     Dates: start: 20091212, end: 20100331

REACTIONS (1)
  - MALIGNANT NEOPLASM PROGRESSION [None]
